FAERS Safety Report 6001300-4 (Version None)
Quarter: 2008Q4

REPORT INFORMATION
  Report Type: 
  Country: None (occurrence: None)
  Receive Date: 20081215
  Receipt Date: 20081202
  Transmission Date: 20090506
  Serious: Yes (Hospitalization)
  Sender: FDA-Public Use
  Company Number: PHHY2008TW30207

PATIENT
  Sex: Female
  Weight: 54 kg

DRUGS (1)
  1. ZOLEDRONATE T29581++BM [Suspect]
     Indication: BREAST CANCER METASTATIC
     Dosage: 4 MG, QMO
     Route: 042
     Dates: start: 20080901

REACTIONS (4)
  - ASTHENIA [None]
  - DIARRHOEA [None]
  - PAIN [None]
  - WHITE BLOOD CELL COUNT DECREASED [None]
